FAERS Safety Report 8257299-3 (Version None)
Quarter: 2012Q1

REPORT INFORMATION
  Report Type: 
  Country: None (occurrence: None)
  Receive Date: 20120330
  Receipt Date: 20120323
  Transmission Date: 20120608
  Serious: No
  Sender: FDA-Public Use
  Company Number: US-PFIZER INC-2012077157

PATIENT
  Age: 16 Year
  Sex: Male

DRUGS (1)
  1. EPIPEN [Suspect]

REACTIONS (4)
  - EXPIRED DRUG ADMINISTERED [None]
  - PAIN IN EXTREMITY [None]
  - SKIN DISCOLOURATION [None]
  - ACCIDENTAL EXPOSURE [None]
